FAERS Safety Report 5129433-5 (Version None)
Quarter: 2006Q4

REPORT INFORMATION
  Report Type: 
  Country: None (occurrence: None)
  Receive Date: 20061018
  Receipt Date: 20060830
  Transmission Date: 20070319
  Serious: Yes (Other)
  Sender: FDA-Public Use
  Company Number: PHBS2006IE13117

PATIENT
  Sex: Female

DRUGS (2)
  1. AREDIA [Suspect]
     Indication: MULTIPLE MYELOMA
  2. THALIDOMIDE [Concomitant]

REACTIONS (4)
  - OSTEONECROSIS [None]
  - THERAPY NON-RESPONDER [None]
  - TOOTH ABSCESS [None]
  - TOOTH EXTRACTION [None]
